FAERS Safety Report 25164073 (Version 1)
Quarter: 2025Q2

REPORT INFORMATION
  Report Type: Spontaneous
  Country: FR (occurrence: FR)
  Receive Date: 20250405
  Receipt Date: 20250405
  Transmission Date: 20250717
  Serious: Yes (Congenital Anomaly, Other)
  Sender: AUROBINDO
  Company Number: FR-AFSSAPS-NT2025000191

PATIENT
  Age: 20 Day
  Sex: Male
  Weight: 8.79 kg

DRUGS (1)
  1. FUROSEMIDE [Suspect]
     Active Substance: FUROSEMIDE
     Indication: Dilated cardiomyopathy
     Route: 064
     Dates: end: 20231222

REACTIONS (4)
  - Congenital ureteropelvic junction obstruction [Unknown]
  - Ventricular septal defect [Recovered/Resolved]
  - Maternal exposure during pregnancy [Recovered/Resolved]
  - Premature baby [Recovered/Resolved]

NARRATIVE: CASE EVENT DATE: 20231019
